FAERS Safety Report 10770769 (Version 1)
Quarter: 2015Q1

REPORT INFORMATION
  Report Type: Spontaneous
  Country: US (occurrence: None)
  Receive Date: 20150206
  Receipt Date: 20150206
  Transmission Date: 20150721
  Serious: No
  Sender: FDA-Public Use
  Company Number: HYP201403-000020

PATIENT
  Age: 16 Month
  Sex: Male

DRUGS (3)
  1. RAVICTI [Suspect]
     Active Substance: GLYCEROL PHENYLBUTYRATE
     Indication: UREA CYCLE ENZYME DEFICIENCY
     Route: 048
     Dates: start: 20140318, end: 20140319
  2. ARGININE [Concomitant]
     Active Substance: ARGININE
  3. RAVICTI [Suspect]
     Active Substance: GLYCEROL PHENYLBUTYRATE
     Indication: UREA CYCLE ENZYME DEFICIENCY
     Route: 048
     Dates: start: 20140320

REACTIONS (4)
  - Irregular sleep phase [None]
  - Irritability [None]
  - Decreased appetite [None]
  - Crying [None]

NARRATIVE: CASE EVENT DATE: 20140319
